FAERS Safety Report 9836398 (Version 1)
Quarter: 2014Q1

REPORT INFORMATION
  Report Type: Spontaneous
  Country: US (occurrence: US)
  Receive Date: 20140123
  Receipt Date: 20140123
  Transmission Date: 20141002
  Serious: Yes (Other)
  Sender: FDA-Public Use
  Company Number: US-BIOGENIDEC-2014BI004485

PATIENT
  Sex: Female

DRUGS (2)
  1. AVONEX [Suspect]
     Indication: MULTIPLE SCLEROSIS
     Route: 030
  2. AMPYRA [Concomitant]
     Indication: MULTIPLE SCLEROSIS

REACTIONS (14)
  - Convulsion [Unknown]
  - Neuralgia [Unknown]
  - Gait disturbance [Unknown]
  - Somnolence [Unknown]
  - Dissociation [Unknown]
  - Sedation [Unknown]
  - Adverse event [Unknown]
  - Aphasia [Unknown]
  - Antibody test positive [Unknown]
  - Injection site pain [Unknown]
  - Pain [Unknown]
  - Hypersensitivity [Unknown]
  - Dizziness [Unknown]
  - Asthenia [Unknown]
